FAERS Safety Report 8053754 (Version 7)
Quarter: 2014Q3

REPORT INFORMATION
  Report Type: Spontaneous
  Country: JP (occurrence: JP)
  Receive Date: 20110726
  Receipt Date: 20140907
  Transmission Date: 20150326
  Serious: No
  Sender: FDA-Public Use
  Company Number: PHHY2011JP64879

PATIENT
  Age: 71 Year
  Sex: Female

DRUGS (4)
  1. TASIGNA [Suspect]
     Active Substance: NILOTINIB
     Indication: CHRONIC MYELOID LEUKAEMIA
     Dosage: 800 MG, DAILY
     Route: 048
     Dates: start: 20110119
  2. TASIGNA [Suspect]
     Active Substance: NILOTINIB
     Dosage: 400 MG, DAILY
     Route: 048
     Dates: start: 20110228
  3. TASIGNA [Suspect]
     Active Substance: NILOTINIB
     Dosage: 800 MG, DAILY
  4. TASIGNA [Suspect]
     Active Substance: NILOTINIB
     Dosage: 400 MG, UNK

REACTIONS (9)
  - Electrocardiogram QT prolonged [Recovered/Resolved]
  - Fluid retention [Recovered/Resolved]
  - Hypokalaemia [Unknown]
  - Glucose tolerance impaired [Recovered/Resolved]
  - Hepatic function abnormal [Unknown]
  - Oedema peripheral [Unknown]
  - Pleural effusion [Recovered/Resolved]
  - Rash [Unknown]
  - Acne [Recovered/Resolved]

NARRATIVE: CASE EVENT DATE: 201101
